FAERS Safety Report 19509291 (Version 1)
Quarter: 2021Q3

REPORT INFORMATION
  Report Type: Spontaneous
  Country: US (occurrence: US)
  Receive Date: 20210709
  Receipt Date: 20210709
  Transmission Date: 20211014
  Serious: No
  Sender: FDA-Public Use
  Company Number: US-PRINSTON PHARMACEUTICAL INC.-2021PRN00130

PATIENT
  Sex: Female

DRUGS (1)
  1. BUPROPION HYDROCHLORIDE. [Suspect]
     Active Substance: BUPROPION HYDROCHLORIDE
     Indication: NEURALGIA

REACTIONS (6)
  - Mental disorder [Unknown]
  - Anger [Unknown]
  - Feeling abnormal [Unknown]
  - Muscular weakness [Unknown]
  - Crying [Unknown]
  - Off label use [Unknown]
